FAERS Safety Report 5795057-X (Version None)
Quarter: 2008Q2

REPORT INFORMATION
  Report Type: 
  Country: None (occurrence: None)
  Receive Date: 20080630
  Receipt Date: 20080326
  Transmission Date: 20081010
  Serious: Yes (Hospitalization)
  Sender: FDA-Public Use
  Company Number: US-BRISTOL-MYERS SQUIBB COMPANY-14121164

PATIENT
  Age: 29 Year
  Sex: Female

DRUGS (13)
  1. ORENCIA [Suspect]
     Indication: RHEUMATOID ARTHRITIS
     Dosage: LAST DOSE ON 05MAR08; PREVIOUSLY ADMINISTERED AT DOSES OF 250 MG,750 MG,1000 MG ALONG WITH SALINE
     Route: 042
     Dates: end: 20080305
  2. PREDNISOLONE [Concomitant]
  3. DULOXETINE HCL [Concomitant]
  4. FOLIC ACID [Concomitant]
  5. PREGABALIN [Concomitant]
  6. PIOGLITAZONE HCL [Concomitant]
  7. VERAPAMIL ER [Concomitant]
  8. ROSUVASTATIN CALCIUM [Concomitant]
  9. MAGNESIUM [Concomitant]
  10. SUCRALFATE [Concomitant]
  11. INSULIN [Concomitant]
  12. METHOTREXATE [Concomitant]
  13. DIPHENHYDRAMINE HCL [Concomitant]
     Indication: PREMEDICATION
     Route: 042

REACTIONS (1)
  - INFUSION RELATED REACTION [None]
